FAERS Safety Report 16639292 (Version 1)
Quarter: 2019Q3

REPORT INFORMATION
  Report Type: Report from Study
  Country: US (occurrence: US)
  Receive Date: 20190726
  Receipt Date: 20190726
  Transmission Date: 20191004
  Serious: Yes (Other)
  Sender: FDA-Public Use
  Company Number: US-TAKEDA-2019TUS044682

PATIENT
  Sex: Female

DRUGS (1)
  1. PONATINIB [Suspect]
     Active Substance: PONATINIB
     Indication: ACUTE LYMPHOCYTIC LEUKAEMIA (IN REMISSION)
     Dosage: 30 MILLIGRAM, QD
     Route: 048
     Dates: start: 20190516

REACTIONS (6)
  - Graft versus host disease in gastrointestinal tract [Unknown]
  - Fluid overload [Unknown]
  - Respiratory failure [Unknown]
  - Pneumonia [Unknown]
  - Acute kidney injury [Unknown]
  - Clostridium difficile colitis [Unknown]
